FAERS Safety Report 18262851 (Version 1)
Quarter: 2020Q3

REPORT INFORMATION
  Report Type: Spontaneous
  Country: US (occurrence: US)
  Receive Date: 20200914
  Receipt Date: 20200914
  Transmission Date: 20201103
  Serious: Yes (Death)
  Sender: FDA-Public Use
  Company Number: None

PATIENT
  Age: 87 Year
  Sex: Female
  Weight: 102 kg

DRUGS (6)
  1. NYSTATIN 100,000 UNITS TOPICALLY BID [Concomitant]
     Dates: start: 20200907, end: 20200909
  2. REMDESIVIR. [Suspect]
     Active Substance: REMDESIVIR
     Indication: COVID-19
     Dates: start: 20200826, end: 20200830
  3. LIDOCAINE PATIENT 4% DAILY [Concomitant]
     Dates: start: 20200908, end: 20200909
  4. LORAZEPAM 1 MG Q4H IV [Concomitant]
     Dates: start: 20200907, end: 20200909
  5. HYDROMORPHONE PCA [Concomitant]
     Active Substance: HYDROMORPHONE
     Dates: start: 20200907, end: 20200909
  6. LORAZEPAM 2 MG IV X1 [Concomitant]
     Dates: start: 20200909

REACTIONS (2)
  - General physical health deterioration [None]
  - Hospice care [None]

NARRATIVE: CASE EVENT DATE: 20200909
